FAERS Safety Report 6836096-7 (Version None)
Quarter: 2010Q3

REPORT INFORMATION
  Report Type: 
  Country: None (occurrence: None)
  Receive Date: 20100713
  Receipt Date: 20100630
  Transmission Date: 20110219
  Serious: Yes (Other)
  Sender: FDA-Public Use
  Company Number: FR-AMGEN-US399497

PATIENT
  Sex: Male

DRUGS (9)
  1. ENBREL [Suspect]
     Indication: PSORIATIC ARTHROPATHY
     Route: 058
     Dates: start: 20091031, end: 20100125
  2. ENBREL [Interacting]
     Route: 058
     Dates: start: 20100126, end: 20100227
  3. ENBREL [Interacting]
     Route: 058
     Dates: start: 20100301
  4. RIFAMATE [Interacting]
     Indication: PRODUCT USED FOR UNKNOWN INDICATION
     Dosage: UNKNOWN; HIGH DOSES
     Route: 048
     Dates: end: 20100101
  5. DOLIPRANE [Interacting]
     Indication: PRODUCT USED FOR UNKNOWN INDICATION
     Dosage: UNKNOWN
     Dates: end: 20100101
  6. METHOTREXATE [Interacting]
     Indication: PSORIATIC ARTHROPATHY
     Dosage: UNKNOWN
     Dates: end: 20100111
  7. NEXIUM [Interacting]
     Indication: PRODUCT USED FOR UNKNOWN INDICATION
     Dosage: UNKNOWN FROM AN UNSPEC. DATE; THEN DOSE WAS FIRST HALF-REDUCED ON 27-JAN-2010
     Dates: end: 20100227
  8. UNSPECIFIED NON-STEROIDAL ANTI-INFLAMMATORY AGENT [Suspect]
     Dates: end: 20100101
  9. TRAMADOL [Concomitant]
     Dosage: UNKNOWN

REACTIONS (4)
  - CONDITION AGGRAVATED [None]
  - DRUG INTERACTION [None]
  - PSORIATIC ARTHROPATHY [None]
  - TRANSAMINASES INCREASED [None]
